FAERS Safety Report 16127152 (Version 2)
Quarter: 2019Q2

REPORT INFORMATION
  Report Type: Spontaneous
  Country: US (occurrence: US)
  Receive Date: 20190328
  Receipt Date: 20190415
  Transmission Date: 20190711
  Serious: No
  Sender: FDA-Public Use
  Company Number: US-BAYER-2019-061182

PATIENT
  Age: 70 Year
  Sex: Male
  Weight: 109 kg

DRUGS (2)
  1. CLARITIN LIQUI-GELS [Suspect]
     Active Substance: LORATADINE
     Indication: NASOPHARYNGITIS
  2. CLARITIN LIQUI-GELS [Suspect]
     Active Substance: LORATADINE
     Indication: ALLERGIC RESPIRATORY SYMPTOM
     Dosage: UNK UNK, QD
     Route: 048
     Dates: start: 201903

REACTIONS (2)
  - Limb injury [Recovered/Resolved]
  - Product closure removal difficult [None]

NARRATIVE: CASE EVENT DATE: 201903
